FAERS Safety Report 4841025-1 (Version None)
Quarter: 2005Q4

REPORT INFORMATION
  Report Type: 
  Country: None (occurrence: None)
  Receive Date: 20051130
  Receipt Date: 20050826
  Transmission Date: 20060501
  Serious: No
  Sender: FDA-Public Use
  Company Number: US-BRISTOL-MYERS SQUIBB COMPANY-13092382

PATIENT
  Age: 34 Year
  Sex: Female

DRUGS (4)
  1. ABILIFY [Suspect]
     Indication: INSOMNIA
  2. REGLAN [Concomitant]
  3. BUSPAR [Concomitant]
  4. TRAZODONE HCL [Concomitant]

REACTIONS (1)
  - TARDIVE DYSKINESIA [None]
